FAERS Safety Report 10458585 (Version 2)
Quarter: 2014Q3

REPORT INFORMATION
  Report Type: Spontaneous
  Country: US (occurrence: US)
  Receive Date: 20140917
  Receipt Date: 20140917
  Transmission Date: 20150326
  Serious: Yes (Hospitalization)
  Sender: FDA-Public Use
  Company Number: PHEH2014US012817

PATIENT
  Age: 61 Year
  Sex: Male
  Weight: 102.49 kg

DRUGS (9)
  1. ILARIS [Suspect]
     Active Substance: CANAKINUMAB
     Indication: AUTOINFLAMMATORY DISEASE
     Dosage: 180 MG, EVERY 8 WEEKS
     Route: 058
     Dates: start: 20140609, end: 20140811
  2. SYNTHROID [Concomitant]
     Active Substance: LEVOTHYROXINE SODIUM
     Dosage: 150 UG, QD
     Route: 048
  3. PENTAMIDINE [Concomitant]
     Active Substance: PENTAMIDINE
     Dosage: QMO (ONCE A MONTH)
     Route: 055
  4. IVGG [Concomitant]
     Dosage: QMO (ONCE A MONTH)
     Route: 042
  5. PREDNISONE. [Concomitant]
     Active Substance: PREDNISONE
     Indication: AUTOINFLAMMATORY DISEASE
     Dosage: 42.5 MG, QD (FOR YEARS)
     Route: 048
     Dates: start: 2009
  6. METHOTREXATE [Suspect]
     Active Substance: METHOTREXATE
     Dosage: UNK
  7. LOVENOX [Concomitant]
     Active Substance: ENOXAPARIN SODIUM
     Dosage: 150 MG, QD
     Route: 058
  8. PROGRAF [Suspect]
     Active Substance: TACROLIMUS\TACROLIMUS ANHYDROUS
     Dosage: UNK
  9. ACTEMRA [Suspect]
     Active Substance: TOCILIZUMAB
     Dosage: UNK

REACTIONS (5)
  - Tendonitis [Recovering/Resolving]
  - Skin infection [Recovering/Resolving]
  - Soft tissue infection [Recovering/Resolving]
  - Mycobacterial infection [Recovering/Resolving]
  - Injection site reaction [Unknown]

NARRATIVE: CASE EVENT DATE: 201407
